FAERS Safety Report 8085434-9 (Version None)
Quarter: 2012Q1

REPORT INFORMATION
  Report Type: 
  Country: None (occurrence: None)
  Receive Date: 20120128
  Receipt Date: 20110524
  Transmission Date: 20120608
  Serious: Yes (Other)
  Sender: FDA-Public Use
  Company Number: US-ABBOTT-11P-163-0704619-00

PATIENT
  Sex: Female
  Weight: 97.61 kg

DRUGS (4)
  1. HUMIRA [Suspect]
     Route: 058
     Dates: start: 20030101, end: 20050101
  2. HUMIRA [Suspect]
     Indication: RHEUMATOID ARTHRITIS
     Route: 058
     Dates: start: 20050101, end: 20070101
  3. HUMIRA [Suspect]
     Indication: FIBROMYALGIA
     Route: 058
     Dates: start: 20101201
  4. HUMIRA [Suspect]
     Indication: OSTEOARTHRITIS
     Route: 058
     Dates: end: 20101101

REACTIONS (6)
  - DYSPNOEA [None]
  - PAIN [None]
  - WHEEZING [None]
  - PNEUMONIA [None]
  - RESPIRATORY TRACT CONGESTION [None]
  - COUGH [None]
